FAERS Safety Report 17718316 (Version 1)
Quarter: 2020Q2

REPORT INFORMATION
  Report Type: Other
  Country: FR (occurrence: FR)
  Receive Date: 20200428
  Receipt Date: 20200428
  Transmission Date: 20200714
  Serious: Yes (Hospitalization, Other)
  Sender: FDA-Public Use
  Company Number: FR-DENTSPLY-2020SCDP000155

PATIENT
  Age: 42 Year
  Sex: Female

DRUGS (1)
  1. PRILOCAINE AND LIDOCAINE [Suspect]
     Active Substance: LIDOCAINE\PRILOCAINE
     Indication: PRODUCT USED FOR UNKNOWN INDICATION
     Dosage: 140 GRAM, TOTAL, THE PATIENT WAS APPLIED 140 GRAM OF EMLP (EUTECTIC MIXTURES OF 2.5% LIDOCAINE AND 2
     Route: 061

REACTIONS (6)
  - Palpitations [Recovered/Resolved]
  - Methaemoglobinaemia [Recovered/Resolved]
  - Dizziness [Recovered/Resolved]
  - Product administration error [Recovered/Resolved]
  - Intentional overdose [Recovered/Resolved]
  - Toxicity to various agents [Recovered/Resolved]
